FAERS Safety Report 6754931-8 (Version None)
Quarter: 2010Q2

REPORT INFORMATION
  Report Type: 
  Country: None (occurrence: None)
  Receive Date: 20100603
  Receipt Date: 20100526
  Transmission Date: 20101027
  Serious: Yes (Other)
  Sender: FDA-Public Use
  Company Number: US-MILLENNIUM PHARMACEUTICALS, INC.-2010-02819

PATIENT
  Age: 10 Month
  Sex: Female

DRUGS (1)
  1. VELCADE [Suspect]
     Indication: PROPHYLAXIS AGAINST TRANSPLANT REJECTION
     Dosage: 1.3 MG/M2, CYCLIC
     Route: 042

REACTIONS (5)
  - ABDOMINAL DISTENSION [None]
  - HEPATITIS INFECTIOUS MONONUCLEOSIS [None]
  - NEUTROPENIA [None]
  - RESPIRATORY DISTRESS [None]
  - THROMBOCYTOPENIA [None]
